FAERS Safety Report 10307370 (Version 2)
Quarter: 2014Q3

REPORT INFORMATION
  Report Type: Spontaneous
  Country: JP (occurrence: JP)
  Receive Date: 20140716
  Receipt Date: 20140804
  Transmission Date: 20150326
  Serious: Yes (Death)
  Sender: FDA-Public Use
  Company Number: JP-ROCHE-1433551

PATIENT
  Age: 98 Year
  Sex: Male
  Weight: 56 kg

DRUGS (10)
  1. CARBAZOCHROME SODIUM SULFONATE [Concomitant]
     Active Substance: CARBAZOCHROME SODIUM SULFONATE
     Dosage: DOSAGE IS UNCERTAIN.?REPORTED AS TONYMALE
     Route: 048
     Dates: start: 20140701, end: 20140705
  2. MUCODYNE [Concomitant]
     Active Substance: CARBOCYSTEINE
     Indication: BRONCHITIS CHRONIC
     Route: 048
     Dates: start: 20110803
  3. MEVALOTIN [Concomitant]
     Active Substance: PRAVASTATIN SODIUM
     Indication: HYPERLIPIDAEMIA
     Route: 048
     Dates: start: 20120106
  4. PROSTANDIN [Concomitant]
     Dosage: DOSAGE IS UNCERTAIN.
     Route: 048
     Dates: start: 20140701, end: 20140705
  5. GENINAX [Suspect]
     Active Substance: GARENOXACIN MESYLATE
     Indication: PNEUMONIA
     Route: 048
     Dates: start: 20140701, end: 20140705
  6. AMLODIN [Concomitant]
     Active Substance: AMLODIPINE BESYLATE
     Indication: DEMENTIA
     Route: 048
     Dates: start: 20120312
  7. ROCEPHIN [Suspect]
     Active Substance: CEFTRIAXONE SODIUM
     Indication: PNEUMONIA
     Route: 041
     Dates: start: 20140630, end: 20140702
  8. ASTOMIN [Concomitant]
     Active Substance: DIMEMORFAN
     Indication: BRONCHITIS CHRONIC
     Dosage: DOSAGE IS UNCERTAIN.
     Route: 048
     Dates: start: 20110803
  9. ROCEPHIN [Suspect]
     Active Substance: CEFTRIAXONE SODIUM
     Indication: PNEUMONIA
     Route: 041
     Dates: start: 20140704, end: 20140704
  10. HOKUNALIN [Concomitant]
     Active Substance: TULOBUTEROL
     Dosage: DOSAGE IS UNCERTAIN.
     Route: 062
     Dates: start: 20140701, end: 20140705

REACTIONS (1)
  - Sudden death [Fatal]

NARRATIVE: CASE EVENT DATE: 20140706
